FAERS Safety Report 17727814 (Version 1)
Quarter: 2020Q2

REPORT INFORMATION
  Report Type: Spontaneous
  Country: US (occurrence: US)
  Receive Date: 20200430
  Receipt Date: 20200430
  Transmission Date: 20200714
  Serious: Yes (Hospitalization)
  Sender: FDA-Public Use
  Company Number: US-ASTRAZENECA-2020SE21588

PATIENT
  Age: 5 Month
  Sex: Male
  Weight: 4.8 kg

DRUGS (3)
  1. SYNAGIS [Suspect]
     Active Substance: PALIVIZUMAB
     Indication: HEART DISEASE CONGENITAL
     Route: 030
     Dates: start: 20191127, end: 20200305
  2. LASIX [Concomitant]
     Active Substance: FUROSEMIDE
     Dates: start: 20191101
  3. LEVOXYL [Concomitant]
     Active Substance: LEVOTHYROXINE SODIUM
     Indication: CONGENITAL HYPOTHYROIDISM
     Dosage: 37.5MG UNKNOWN
     Dates: start: 20191127

REACTIONS (1)
  - Pneumonia [Unknown]
